FAERS Safety Report 25809927 (Version 1)
Quarter: 2025Q3

REPORT INFORMATION
  Report Type: Report from Study
  Country: US (occurrence: US)
  Receive Date: 20250917
  Receipt Date: 20250917
  Transmission Date: 20251021
  Serious: No
  Sender: TRAVERE THERAPEUTICS
  Company Number: US-TRAVERE-2025TVT01168

PATIENT
  Age: 79 Year
  Sex: Male

DRUGS (12)
  1. FILSPARI [Suspect]
     Active Substance: SPARSENTAN
     Indication: IgA nephropathy
     Route: 048
     Dates: start: 20250623
  2. METOPROLOL [Concomitant]
     Active Substance: METOPROLOL
  3. TARPEYO [Concomitant]
     Active Substance: BUDESONIDE
  4. AMBIEN [Concomitant]
     Active Substance: ZOLPIDEM TARTRATE
  5. ALLOPURINOL [Concomitant]
     Active Substance: ALLOPURINOL
  6. COLCHICINE [Concomitant]
     Active Substance: COLCHICINE
  7. JARDIANCE [Concomitant]
     Active Substance: EMPAGLIFLOZIN
  8. ELIQUIS [Concomitant]
     Active Substance: APIXABAN
  9. PRILOSEC [Concomitant]
     Active Substance: OMEPRAZOLE MAGNESIUM
  10. CRESTOR [Concomitant]
     Active Substance: ROSUVASTATIN CALCIUM
  11. ZESTRIL [Concomitant]
     Active Substance: LISINOPRIL
  12. VIAGRA [Concomitant]
     Active Substance: SILDENAFIL CITRATE

REACTIONS (5)
  - Blood urea increased [Unknown]
  - Blood creatine increased [Unknown]
  - Glomerular filtration rate decreased [Unknown]
  - Urine ketone body present [Unknown]
  - Glucose urine present [Unknown]

NARRATIVE: CASE EVENT DATE: 20250623
